FAERS Safety Report 22245883 (Version 1)
Quarter: 2023Q2

REPORT INFORMATION
  Report Type: Report from Study
  Country: US (occurrence: US)
  Receive Date: 20230424
  Receipt Date: 20230424
  Transmission Date: 20230722
  Serious: Yes (Death)
  Sender: FDA-Public Use
  Company Number: US-002147023-NVSC2023US092648

PATIENT
  Age: 80 Year
  Sex: Female

DRUGS (2)
  1. MEKINIST [Suspect]
     Active Substance: TRAMETINIB DIMETHYL SULFOXIDE
     Indication: Malignant melanoma
     Dosage: 2 MG, QD
     Route: 048
     Dates: start: 20190905
  2. MEKINIST [Suspect]
     Active Substance: TRAMETINIB DIMETHYL SULFOXIDE
     Indication: Metastases to lung

REACTIONS (1)
  - Death [Fatal]

NARRATIVE: CASE EVENT DATE: 20230421
